FAERS Safety Report 8130613-5 (Version None)
Quarter: 2012Q1

REPORT INFORMATION
  Report Type: 
  Country: None (occurrence: None)
  Receive Date: 20120213
  Receipt Date: 20120202
  Transmission Date: 20120608
  Serious: Yes (Hospitalization)
  Sender: FDA-Public Use
  Company Number: US-BIOGENIDEC-2011BI020715

PATIENT
  Age: 55 Year
  Sex: Male

DRUGS (5)
  1. TYSABRI [Suspect]
     Indication: MULTIPLE SCLEROSIS
     Route: 042
     Dates: start: 20080117, end: 20110331
  2. BACLOFEN [Concomitant]
     Indication: PRODUCT USED FOR UNKNOWN INDICATION
  3. DITROPAN [Concomitant]
     Indication: PRODUCT USED FOR UNKNOWN INDICATION
  4. FENTANYL-100 [Concomitant]
     Indication: PRODUCT USED FOR UNKNOWN INDICATION
  5. SINGLAIR (MONTELUKAST SODIUM) [Concomitant]
     Indication: PRODUCT USED FOR UNKNOWN INDICATION

REACTIONS (10)
  - DRUG INEFFECTIVE [None]
  - FALL [None]
  - BLOOD CARBON MONOXIDE [None]
  - SUICIDAL IDEATION [None]
  - JOINT INJURY [None]
  - COMA [None]
  - RENAL FAILURE [None]
  - SYNCOPE [None]
  - INJURY [None]
  - ENDOTRACHEAL INTUBATION [None]
